FAERS Safety Report 7765323-7 (Version None)
Quarter: 2011Q3

REPORT INFORMATION
  Report Type: 
  Country: None (occurrence: None)
  Receive Date: 20110921
  Receipt Date: 20110920
  Transmission Date: 20111222
  Serious: No
  Sender: FDA-Public Use
  Company Number: US-BAYER-2011-088415

PATIENT
  Age: 42 Year
  Sex: Female

DRUGS (1)
  1. MIRENA [Suspect]
     Indication: CONTRACEPTION
     Dosage: 20 MCG/24HR, CONT
     Route: 015
     Dates: start: 20090801, end: 20110919

REACTIONS (7)
  - NIGHT SWEATS [None]
  - ABDOMINAL PAIN [None]
  - MOOD SWINGS [None]
  - PARAESTHESIA [None]
  - WEIGHT INCREASED [None]
  - ACNE CYSTIC [None]
  - ABDOMINAL DISTENSION [None]
